FAERS Safety Report 17013518 (Version 3)
Quarter: 2020Q1

REPORT INFORMATION
  Report Type: Spontaneous
  Country: US (occurrence: US)
  Receive Date: 20191110
  Receipt Date: 20200116
  Transmission Date: 20200409
  Serious: Yes (Death, Other)
  Sender: FDA-Public Use
  Company Number: US-LEXICON PHARMACEUTICALS, INC-19-1606-01026

PATIENT
  Age: 63 Year
  Sex: Male

DRUGS (16)
  1. OCTREOTIDE. [Concomitant]
     Active Substance: OCTREOTIDE
  2. ZOFRAN [Concomitant]
     Active Substance: ONDANSETRON HYDROCHLORIDE
  3. DILAUDID [Concomitant]
     Active Substance: HYDROMORPHONE HYDROCHLORIDE
  4. COMPAZINE [Concomitant]
     Active Substance: PROCHLORPERAZINE MALEATE
  5. DIAZEPAM. [Concomitant]
     Active Substance: DIAZEPAM
  6. PROTONIX [Concomitant]
     Active Substance: PANTOPRAZOLE SODIUM
  7. XERMELO [Suspect]
     Active Substance: TELOTRISTAT ETHYL
     Indication: CARCINOID TUMOUR OF THE SMALL BOWEL
     Dates: start: 20191018, end: 20191020
  8. LANREOTIDE [Concomitant]
     Active Substance: LANREOTIDE
  9. PROPRANOLOL [Concomitant]
     Active Substance: PROPRANOLOL HYDROCHLORIDE
  10. DEXAMETHASONE. [Concomitant]
     Active Substance: DEXAMETHASONE
  11. OPIUM TINCTURE [Concomitant]
     Active Substance: MORPHINE
  12. FLOMAX [Concomitant]
     Active Substance: TAMSULOSIN HYDROCHLORIDE
  13. HALDOL [Concomitant]
     Active Substance: HALOPERIDOL
  14. FENTANYL TRANSDERMAL SYSTEM [Concomitant]
     Active Substance: FENTANYL
  15. DIGOXIN. [Concomitant]
     Active Substance: DIGOXIN
  16. MORPHINE [Concomitant]
     Active Substance: MORPHINE

REACTIONS (5)
  - Diarrhoea [Not Recovered/Not Resolved]
  - Hospice care [Not Recovered/Not Resolved]
  - Neoplasm malignant [Fatal]
  - Abdominal pain [Not Recovered/Not Resolved]
  - Nausea [Unknown]

NARRATIVE: CASE EVENT DATE: 20191028
